FAERS Safety Report 12728088 (Version 1)
Quarter: 2016Q3

REPORT INFORMATION
  Report Type: Spontaneous
  Country: US (occurrence: US)
  Receive Date: 20160906
  Receipt Date: 20160906
  Transmission Date: 20161109
  Serious: Yes (Disabling)
  Sender: FDA-Public Use
  Company Number: None

PATIENT
  Age: 81 Year
  Sex: Female
  Weight: 84.82 kg

DRUGS (10)
  1. OXYCODONE HYDROCHLORIDE. [Concomitant]
     Active Substance: OXYCODONE HYDROCHLORIDE
  2. POTASSIUM CITRATE. [Concomitant]
     Active Substance: POTASSIUM CITRATE
  3. MULTIVITAMIN [Concomitant]
     Active Substance: VITAMINS
  4. IMODIUM [Concomitant]
     Active Substance: LOPERAMIDE HYDROCHLORIDE
  5. TYLENOL [Concomitant]
     Active Substance: ACETAMINOPHEN
  6. PROVENTIL HFA [Suspect]
     Active Substance: ALBUTEROL SULFATE
     Indication: BRONCHITIS
     Dosage: 2 PUFFS 4 TIMES DAILY BY MOUTH
     Route: 048
     Dates: start: 20160217, end: 20160223
  7. WARFARIN [Concomitant]
     Active Substance: WARFARIN
  8. TRAZODONE [Concomitant]
     Active Substance: TRAZODONE HYDROCHLORIDE
  9. VITAMIN D [Concomitant]
     Active Substance: CHOLECALCIFEROL
  10. OSTEOPRIME [Concomitant]

REACTIONS (1)
  - Pulmonary arterial hypertension [None]

NARRATIVE: CASE EVENT DATE: 20160303
